FAERS Safety Report 16478295 (Version 2)
Quarter: 2019Q4

REPORT INFORMATION
  Report Type: Spontaneous
  Country: US (occurrence: US)
  Receive Date: 20190626
  Receipt Date: 20191002
  Transmission Date: 20200122
  Serious: Yes (Other)
  Sender: FDA-Public Use
  Company Number: US-PFIZER INC-2019266621

PATIENT
  Age: 36 Year
  Weight: 82.55 kg

DRUGS (4)
  1. VIAGRA [Suspect]
     Active Substance: SILDENAFIL CITRATE
     Dosage: 400 MG, UNK
     Dates: start: 20190926
  2. VIAGRA [Suspect]
     Active Substance: SILDENAFIL CITRATE
     Indication: ERECTILE DYSFUNCTION
     Dosage: 100 MG, UNK
  3. MOTRIN [Suspect]
     Active Substance: IBUPROFEN
     Dosage: 800 MG, UNK
  4. CHANTIX [Suspect]
     Active Substance: VARENICLINE TARTRATE
     Indication: SMOKING CESSATION THERAPY
     Dosage: UNK
     Dates: start: 20190915

REACTIONS (4)
  - Penile pain [Unknown]
  - Accidental overdose [Unknown]
  - Erection increased [Unknown]
  - Dysuria [Unknown]

NARRATIVE: CASE EVENT DATE: 20190926
